FAERS Safety Report 6103725-5 (Version None)
Quarter: 2009Q1

REPORT INFORMATION
  Report Type: 
  Country: None (occurrence: None)
  Receive Date: 20090305
  Receipt Date: 20090220
  Transmission Date: 20090719
  Serious: Yes (Hospitalization)
  Sender: FDA-Public Use
  Company Number: PHHY2009DE06534

PATIENT
  Sex: Female

DRUGS (6)
  1. DICLOFENAC [Suspect]
  2. HYDROCHLOROTHIAZIDE [Concomitant]
  3. FENTANYL [Concomitant]
  4. PANTOZOL [Concomitant]
  5. DIGITOXIN TAB [Concomitant]
  6. TETRAZEPAM [Concomitant]

REACTIONS (5)
  - ASCITES [None]
  - BIOPSY SKIN [None]
  - ILEUS [None]
  - MELAENA [None]
  - VASCULITIS [None]
